FAERS Safety Report 21462581 (Version 1)
Quarter: 2022Q4

REPORT INFORMATION
  Report Type: Spontaneous
  Country: US (occurrence: US)
  Receive Date: 20221016
  Receipt Date: 20221016
  Transmission Date: 20230113
  Serious: Yes (Other)
  Sender: FDA-Public Use
  Company Number: US-JNJFOC-20221011065

PATIENT
  Age: 59 Year
  Sex: Female
  Weight: 85.806 kg

DRUGS (12)
  1. INVEGA [Suspect]
     Active Substance: PALIPERIDONE
     Indication: Schizophrenia
     Route: 048
     Dates: start: 2019
  2. INVEGA [Suspect]
     Active Substance: PALIPERIDONE
     Route: 048
  3. INVEGA [Suspect]
     Active Substance: PALIPERIDONE
     Route: 048
     Dates: start: 202204
  4. INVEGA SUSTENNA [Suspect]
     Active Substance: PALIPERIDONE PALMITATE
     Indication: Schizophrenia
     Route: 030
     Dates: start: 2019
  5. INVEGA SUSTENNA [Suspect]
     Active Substance: PALIPERIDONE PALMITATE
     Route: 030
  6. INVEGA SUSTENNA [Suspect]
     Active Substance: PALIPERIDONE PALMITATE
  7. INVEGA TRINZA [Suspect]
     Active Substance: PALIPERIDONE PALMITATE
     Indication: Product used for unknown indication
     Route: 030
  8. INVEGA TRINZA [Suspect]
     Active Substance: PALIPERIDONE PALMITATE
  9. INVEGA TRINZA [Suspect]
     Active Substance: PALIPERIDONE PALMITATE
  10. CLOZARIL [Suspect]
     Active Substance: CLOZAPINE
     Indication: Product used for unknown indication
     Dosage: 300MG AT BEDTIME BUT THEY ADDED 25MG IN THE MORNING
     Route: 065
  11. LEXAPRO [Concomitant]
     Active Substance: ESCITALOPRAM OXALATE
     Indication: Product used for unknown indication
     Route: 065
     Dates: start: 20190101
  12. ESTRADIOL [Concomitant]
     Active Substance: ESTRADIOL
     Indication: Menopause

REACTIONS (16)
  - Loss of consciousness [Unknown]
  - Schizophrenia [Unknown]
  - Mental impairment [Unknown]
  - Drug intolerance [Recovering/Resolving]
  - COVID-19 [Unknown]
  - Drug ineffective [Unknown]
  - Stupor [Unknown]
  - Incoherent [Unknown]
  - Tremor [Unknown]
  - Weight increased [Unknown]
  - Hyperhidrosis [Unknown]
  - Menopause [Unknown]
  - Restlessness [Unknown]
  - Fall [Unknown]
  - Anxiety [Unknown]
  - Feeling abnormal [Unknown]

NARRATIVE: CASE EVENT DATE: 20201021
